FAERS Safety Report 21822243 (Version 2)
Quarter: 2023Q1

REPORT INFORMATION
  Report Type: Spontaneous
  Country: EG (occurrence: EG)
  Receive Date: 20230105
  Receipt Date: 20230120
  Transmission Date: 20230418
  Serious: Yes (Death, Hospitalization, Other)
  Sender: FDA-Public Use
  Company Number: EG-SA-SAC20230103000113

PATIENT
  Age: 77 Year

DRUGS (2)
  1. ENOXAPARIN SODIUM [Suspect]
     Active Substance: ENOXAPARIN SODIUM
     Indication: Thrombosis prophylaxis
     Dosage: UNK
     Route: 058
     Dates: start: 20221215
  2. LINEZOLID [Suspect]
     Active Substance: LINEZOLID
     Dosage: DOSE OF ONE VIAL EVERY 12 HR
     Dates: start: 20221208

REACTIONS (5)
  - Haematuria [Unknown]
  - Thrombocytopenia [Unknown]
  - Infarction [Unknown]
  - Pneumonia [Unknown]
  - General physical health deterioration [Fatal]

NARRATIVE: CASE EVENT DATE: 20221218
